FAERS Safety Report 23763032 (Version 1)
Quarter: 2024Q2

REPORT INFORMATION
  Report Type: Spontaneous
  Country: US (occurrence: US)
  Receive Date: 20240419
  Receipt Date: 20240419
  Transmission Date: 20240716
  Serious: No
  Sender: FDA-Public Use
  Company Number: US-SA-SAC20240416001202

PATIENT
  Age: 10 Year
  Sex: Female
  Weight: 45 kg

DRUGS (15)
  1. DUPIXENT [Suspect]
     Active Substance: DUPILUMAB
     Indication: Dermatitis atopic
     Dosage: 200 MG, QOW
     Route: 058
     Dates: start: 202109, end: 202404
  2. DEPAKOTE [Concomitant]
     Active Substance: DIVALPROEX SODIUM
  3. ZONISAMIDE [Concomitant]
     Active Substance: ZONISAMIDE
  4. OFLOXACIN [Concomitant]
     Active Substance: OFLOXACIN
  5. VALTOCO [Concomitant]
     Active Substance: DIAZEPAM
  6. ETHOSUXIMIDE [Concomitant]
     Active Substance: ETHOSUXIMIDE
  7. ACETAMINOPHEN [Concomitant]
     Active Substance: ACETAMINOPHEN
  8. MOTRIN IB [Concomitant]
     Active Substance: IBUPROFEN
  9. FLONASE ALLERGY RELIEF [Concomitant]
     Active Substance: FLUTICASONE PROPIONATE
  10. ALBUTEROL SULFATE [Concomitant]
     Active Substance: ALBUTEROL SULFATE
  11. FLOVENT HFA [Concomitant]
     Active Substance: FLUTICASONE PROPIONATE
  12. MAGNESIUM [Concomitant]
     Active Substance: MAGNESIUM
  13. VITAMINS NOS [Concomitant]
     Active Substance: VITAMINS
  14. ZYRTEC [Concomitant]
     Active Substance: CETIRIZINE HYDROCHLORIDE
  15. IMITREX [Concomitant]
     Active Substance: SUMATRIPTAN SUCCINATE

REACTIONS (1)
  - Abdominal pain [Unknown]

NARRATIVE: CASE EVENT DATE: 20240409
